FAERS Safety Report 4674265-5 (Version None)
Quarter: 2005Q2

REPORT INFORMATION
  Report Type: 
  Country: None (occurrence: None)
  Receive Date: 20050526
  Receipt Date: 20050426
  Transmission Date: 20051028
  Serious: Yes (Life-Threatening, Hospitalization)
  Sender: FDA-Public Use
  Company Number: JP-BRISTOL-MYERS SQUIBB COMPANY-12947487

PATIENT
  Age: 55 Year
  Sex: Female

DRUGS (9)
  1. PARAPLATIN [Suspect]
     Indication: TONGUE NEOPLASM MALIGNANT STAGE UNSPECIFIED
     Route: 042
     Dates: start: 20040623, end: 20040623
  2. IOPAMIDOL [Suspect]
     Indication: ANGIOGRAM
     Route: 013
     Dates: start: 20040623, end: 20040623
  3. INDIGO CARMINE [Concomitant]
     Route: 013
     Dates: start: 20040623, end: 20040623
  4. HEPARIN SODIUM [Concomitant]
     Route: 042
     Dates: start: 20040623, end: 20040623
  5. PENTAZOCINE LACTATE [Concomitant]
     Route: 030
     Dates: start: 20040623, end: 20040623
  6. ATARAX [Concomitant]
     Route: 030
     Dates: start: 20040623, end: 20040623
  7. CEFMETAZON [Concomitant]
     Route: 041
     Dates: start: 20040623, end: 20040628
  8. ZOFRAN [Concomitant]
     Route: 041
     Dates: start: 20040623, end: 20040624
  9. SOLU-MEDROL [Concomitant]
     Route: 042
     Dates: start: 20040623, end: 20040628

REACTIONS (5)
  - DYSPHONIA [None]
  - HYPERSENSITIVITY [None]
  - LARYNGEAL OEDEMA [None]
  - NECROSIS [None]
  - OBSTRUCTIVE AIRWAYS DISORDER [None]
